FAERS Safety Report 18063415 (Version 1)
Quarter: 2020Q3

REPORT INFORMATION
  Report Type: Spontaneous
  Country: PT (occurrence: PT)
  Receive Date: 20200724
  Receipt Date: 20200724
  Transmission Date: 20201103
  Serious: Yes (Death, Other)
  Sender: FDA-Public Use
  Company Number: PT-AXELLIA-003277

PATIENT
  Age: 74 Year
  Sex: Male

DRUGS (4)
  1. CEFPIROME [Concomitant]
     Active Substance: CEFPIROME
     Indication: PRODUCT USED FOR UNKNOWN INDICATION
  2. VANCOMYCIN [Suspect]
     Active Substance: VANCOMYCIN
     Indication: INFECTION
  3. RIFAXIMIN. [Suspect]
     Active Substance: RIFAXIMIN
     Indication: INFECTION
     Dosage: UNK
  4. GENTAMICIN. [Suspect]
     Active Substance: GENTAMICIN
     Indication: INFECTION
     Dosage: UNK

REACTIONS (7)
  - Drug ineffective [Fatal]
  - Renal impairment [Unknown]
  - Respiratory disorder [Unknown]
  - Cerebral ischaemia [Unknown]
  - Cardio-respiratory arrest [Unknown]
  - Nervous system disorder [Unknown]
  - Condition aggravated [Unknown]
